FAERS Safety Report 9796597 (Version 1)
Quarter: 2014Q1

REPORT INFORMATION
  Report Type: Spontaneous
  Country: US (occurrence: US)
  Receive Date: 20140103
  Receipt Date: 20140103
  Transmission Date: 20141002
  Serious: Yes (Hospitalization)
  Sender: FDA-Public Use
  Company Number: US-ELI_LILLY_AND_COMPANY-US201312008405

PATIENT
  Age: 59 Year
  Sex: Female

DRUGS (2)
  1. HUMALOG LISPRO [Suspect]
     Indication: TYPE 2 DIABETES MELLITUS
     Dosage: UNK
     Route: 065
     Dates: start: 201304
  2. LANTUS [Concomitant]

REACTIONS (4)
  - Blood glucose increased [Unknown]
  - Colitis [Unknown]
  - Blood glucose increased [Unknown]
  - Rotator cuff syndrome [Unknown]
